FAERS Safety Report 8570019-8 (Version None)
Quarter: 2012Q3

REPORT INFORMATION
  Report Type: 
  Country: None (occurrence: None)
  Receive Date: 20120803
  Receipt Date: 20120526
  Transmission Date: 20120928
  Serious: No
  Sender: FDA-Public Use
  Company Number: US-ABBOTT-12P-163-0939869-00

PATIENT
  Sex: Female
  Weight: 56.75 kg

DRUGS (4)
  1. ZITHROMAX [Concomitant]
  2. ZITHROMAX [Concomitant]
     Indication: PRODUCT USED FOR UNKNOWN INDICATION
  3. NIASPAN [Suspect]
     Indication: BLOOD CHOLESTEROL ABNORMAL
     Dosage: AT BEDTIME
     Dates: start: 20120525
  4. OOESTRIM BIRTH CONTROL PILLS [Concomitant]
     Indication: CONTRACEPTION
     Dosage: PILLS

REACTIONS (1)
  - PRURITUS [None]
